FAERS Safety Report 8297067-X (Version None)
Quarter: 2012Q2

REPORT INFORMATION
  Report Type: 
  Country: None (occurrence: None)
  Receive Date: 20120416
  Receipt Date: 20120410
  Transmission Date: 20120825
  Serious: Yes (Hospitalization, Other)
  Sender: FDA-Public Use
  Company Number: 2007-157966-NL

PATIENT
  Age: 42 Year
  Sex: Female
  Weight: 81.1939 kg

DRUGS (3)
  1. NUVARING [Suspect]
     Indication: CONTRACEPTION
     Dosage: 1 DF,, VAG
     Route: 067
     Dates: start: 20040601, end: 20070425
  2. NUVARING [Suspect]
     Indication: ENDOMETRIOSIS
     Dosage: 1 DF,, VAG
     Route: 067
     Dates: start: 20040601, end: 20070425
  3. NAPROSYN [Concomitant]

REACTIONS (19)
  - NAUSEA [None]
  - MAMMOGRAM ABNORMAL [None]
  - OSTEOARTHRITIS [None]
  - LEFT ATRIAL DILATATION [None]
  - TRANSIENT ISCHAEMIC ATTACK [None]
  - HYSTERECTOMY [None]
  - EJECTION FRACTION DECREASED [None]
  - LEFT VENTRICULAR HYPERTROPHY [None]
  - CEREBROVASCULAR ACCIDENT [None]
  - SLEEP DISORDER [None]
  - MITRAL VALVE INCOMPETENCE [None]
  - TRICUSPID VALVE INCOMPETENCE [None]
  - PELVIC PAIN [None]
  - HYPOKALAEMIA [None]
  - CARPAL TUNNEL SYNDROME [None]
  - BURNING SENSATION [None]
  - OOPHORECTOMY BILATERAL [None]
  - HOT FLUSH [None]
  - ILL-DEFINED DISORDER [None]
